FAERS Safety Report 19199320 (Version 2)
Quarter: 2021Q2

REPORT INFORMATION
  Report Type: Spontaneous
  Country: JP (occurrence: JP)
  Receive Date: 20210429
  Receipt Date: 20210518
  Transmission Date: 20210717
  Serious: Yes (Other)
  Sender: FDA-Public Use
  Company Number: JP-BAXTER-2021BAX009475

PATIENT
  Age: 41 Year
  Sex: Female

DRUGS (1)
  1. DOXIL [Suspect]
     Active Substance: DOXORUBICIN HYDROCHLORIDE
     Indication: SARCOMA UTERUS
     Dosage: 20MG (75 MG/M2,1 IN 3 WK)
     Route: 065

REACTIONS (1)
  - Pneumothorax [Unknown]
